FAERS Safety Report 25541171 (Version 4)
Quarter: 2025Q3

REPORT INFORMATION
  Report Type: Report from Study
  Country: KR (occurrence: KR)
  Receive Date: 20250710
  Receipt Date: 20250909
  Transmission Date: 20251020
  Serious: Yes (Hospitalization, Disabling, Other)
  Sender: JOHNSON AND JOHNSON
  Company Number: KR-JNJFOC-20250706614

PATIENT
  Age: 55 Year
  Sex: Male
  Weight: 53 kg

DRUGS (21)
  1. TECLISTAMAB [Suspect]
     Active Substance: TECLISTAMAB
     Indication: Plasma cell myeloma
     Dates: start: 20250125
  2. TECLISTAMAB [Suspect]
     Active Substance: TECLISTAMAB
     Dosage: .4384872(30MG)/ 4384507(150MG)
     Route: 058
     Dates: start: 20250630, end: 20250714
  3. Thiamine HCI [Concomitant]
     Indication: Hypophagia
     Route: 041
     Dates: start: 20250720, end: 20250722
  4. LACOSAMIDE [Concomitant]
     Active Substance: LACOSAMIDE
     Indication: Seizure prophylaxis
     Route: 048
     Dates: start: 20250720, end: 20250722
  5. ENTECAVIR [Concomitant]
     Active Substance: ENTECAVIR
     Indication: Atrioventricular block complete
     Route: 048
     Dates: start: 20250722
  6. SMX TMP [Concomitant]
     Indication: Infection
     Route: 048
     Dates: start: 20250722
  7. LACTULOSE [Concomitant]
     Active Substance: LACTULOSE
     Indication: Constipation
     Route: 048
     Dates: start: 20250722
  8. PRUCALOPRIDE [Concomitant]
     Active Substance: PRUCALOPRIDE
     Indication: Constipation
     Route: 048
     Dates: start: 20250722
  9. CALCIUM POLYSTYRENE SULFONATE [Concomitant]
     Active Substance: CALCIUM POLYSTYRENE SULFONATE
     Indication: Blood potassium abnormal
     Route: 048
     Dates: start: 20250630, end: 20250714
  10. ACYCLOVIR [Concomitant]
     Active Substance: ACYCLOVIR
     Indication: Prophylaxis
     Dates: start: 20250720
  11. SODIUM BICARBONATE [Concomitant]
     Active Substance: SODIUM BICARBONATE
     Indication: Gastrointestinal disorder therapy
     Route: 048
     Dates: start: 20250722, end: 20250818
  12. PREGABALIN [Concomitant]
     Active Substance: PREGABALIN
     Indication: Peripheral sensory neuropathy
     Route: 048
     Dates: start: 20250730
  13. ZOLPIDEM [Concomitant]
     Active Substance: ZOLPIDEM TARTRATE
     Indication: Insomnia
     Route: 048
     Dates: start: 20250730
  14. TRAZODONE [Concomitant]
     Active Substance: TRAZODONE HYDROCHLORIDE
     Indication: Insomnia
     Route: 048
     Dates: start: 20250730, end: 20250816
  15. Cough syrup(R) [Concomitant]
     Indication: Cough
     Route: 048
     Dates: start: 20250805
  16. CODEINE [Concomitant]
     Active Substance: CODEINE
     Indication: Cough
     Route: 048
     Dates: start: 20250807, end: 20250811
  17. IMMUNOGLOBULIN G 5% [Concomitant]
     Indication: Hypogammaglobulinaemia
     Dates: start: 20250811, end: 20250811
  18. LEVOFLOXACIN [Concomitant]
     Active Substance: LEVOFLOXACIN
     Indication: Infection prophylaxis
     Dates: start: 20250812, end: 20250812
  19. FLUDROCORTISONE [Concomitant]
     Active Substance: FLUDROCORTISONE
     Indication: Hyperkalaemia
     Route: 048
     Dates: start: 20250813
  20. PIPERACILLIN SODIUM\TAZOBACTAM SODIUM [Concomitant]
     Active Substance: PIPERACILLIN SODIUM\TAZOBACTAM SODIUM
     Indication: Infection
     Dates: start: 20250813, end: 20250818
  21. OXYCODONE [Concomitant]
     Active Substance: OXYCODONE
     Indication: Pain
     Route: 048
     Dates: start: 20250816, end: 20250816

REACTIONS (2)
  - Progressive multifocal leukoencephalopathy [Recovered/Resolved]
  - Hyperkalaemia [Recovered/Resolved]

NARRATIVE: CASE EVENT DATE: 20250630
